FAERS Safety Report 6909015-2 (Version None)
Quarter: 2010Q3

REPORT INFORMATION
  Report Type: 
  Country: None (occurrence: None)
  Receive Date: 20100803
  Receipt Date: 20100727
  Transmission Date: 20110219
  Serious: Yes (Other)
  Sender: FDA-Public Use
  Company Number: 2009SP039423

PATIENT
  Age: 57 Year
  Sex: Female
  Weight: 88.4514 kg

DRUGS (8)
  1. MIRALAX [Suspect]
     Indication: CONSTIPATION
     Dosage: 17 GM;QD;PO, 17 GM;QD;PO
     Route: 048
     Dates: start: 20090701, end: 20091110
  2. MIRALAX [Suspect]
     Indication: CONSTIPATION
     Dosage: 17 GM;QD;PO, 17 GM;QD;PO
     Route: 048
     Dates: start: 20091201
  3. ASPIRIN /00002703/ [Concomitant]
  4. CALCIUM MAGNESIUM /01320801/ [Concomitant]
  5. POTASSIUM [Concomitant]
  6. LEVOTHYROXINE SODIUM [Concomitant]
  7. MULTI-VITAMINS [Concomitant]
  8. MAGNESIUM PLUS /01486801/ [Concomitant]

REACTIONS (24)
  - ABNORMAL DREAMS [None]
  - ANEURYSM [None]
  - ASTHENIA [None]
  - AUTOIMMUNE THYROIDITIS [None]
  - BRADYCARDIA [None]
  - COGNITIVE DISORDER [None]
  - ELECTROENCEPHALOGRAM ABNORMAL [None]
  - EMOTIONAL DISORDER [None]
  - FEELING ABNORMAL [None]
  - HASHIMOTO'S ENCEPHALOPATHY [None]
  - HEMIPARESIS [None]
  - HEPATIC ENZYME INCREASED [None]
  - HYPOAESTHESIA [None]
  - LOSS OF CONSCIOUSNESS [None]
  - MEMORY IMPAIRMENT [None]
  - MIGRAINE [None]
  - NERVOUSNESS [None]
  - OXYGEN SATURATION DECREASED [None]
  - SLEEP APNOEA SYNDROME [None]
  - SPEECH DISORDER [None]
  - SYNCOPE [None]
  - THYROID NEOPLASM [None]
  - TRANSIENT ISCHAEMIC ATTACK [None]
  - VISUAL IMPAIRMENT [None]
